FAERS Safety Report 9190936 (Version 1)
Quarter: 2013Q1

REPORT INFORMATION
  Report Type: Spontaneous
  Country: US (occurrence: None)
  Receive Date: 20120703
  Receipt Date: 20120703
  Transmission Date: 20140127
  Serious: Yes (Other)
  Sender: FDA-Public Use
  Company Number: PHEH2012US007742

PATIENT
  Age: 40 Year
  Sex: Male

DRUGS (7)
  1. GILENYA [Suspect]
     Indication: MULTIPLE SCLEROSIS
     Route: 048
     Dates: start: 20120326
  2. FLUOXETINE (FLUOXETINE), 40MG [Concomitant]
  3. DETROL -SLOW RELEASE (TOLTERODINE L-TARTRATE) 2 MG [Concomitant]
  4. TIZANIDINE (TIZANIDINE), 6MG [Concomitant]
  5. RESTORIL (TEMAZEPAM), 30MG [Concomitant]
  6. VICODIN (HYDROCODONE BITARTRATE, PARACETMOL, 50 MG [Concomitant]
  7. BACLOFEN (BACLOFEN) [Concomitant]

REACTIONS (1)
  - Hypertension [None]
